FAERS Safety Report 23831328 (Version 1)
Quarter: 2024Q2

REPORT INFORMATION
  Report Type: Spontaneous
  Country: US (occurrence: US)
  Receive Date: 20240508
  Receipt Date: 20240508
  Transmission Date: 20240716
  Serious: No
  Sender: FDA-Public Use
  Company Number: US-PFIZER INC-202400102072

PATIENT
  Age: 55 Year
  Sex: Female

DRUGS (2)
  1. XELJANZ XR [Suspect]
     Active Substance: TOFACITINIB CITRATE
     Dosage: 11 MG, 1X/DAY
     Route: 048
     Dates: start: 20240404
  2. NALTREXONE [Suspect]
     Active Substance: NALTREXONE
     Dosage: 4.5 MG, DAILY
     Dates: start: 20240404

REACTIONS (1)
  - Headache [Not Recovered/Not Resolved]
